FAERS Safety Report 9596881 (Version 1)
Quarter: 2013Q4

REPORT INFORMATION
  Report Type: Spontaneous
  Country: GB (occurrence: GB)
  Receive Date: 20131004
  Receipt Date: 20131004
  Transmission Date: 20140711
  Serious: Yes (Disabling, Other)
  Sender: FDA-Public Use
  Company Number: GB-TEVA-434392ISR

PATIENT
  Age: 55 Year
  Sex: Male
  Weight: 115 kg

DRUGS (1)
  1. WARFARIN [Suspect]
     Indication: DEEP VEIN THROMBOSIS
     Dosage: AS PER INTERNATIOAL NORMALISED RATIO
     Route: 048
     Dates: start: 2006, end: 20130820

REACTIONS (2)
  - Neuropathy peripheral [Recovered/Resolved with Sequelae]
  - Ulcer [Unknown]
